FAERS Safety Report 4509069-7 (Version None)
Quarter: 2004Q4

REPORT INFORMATION
  Report Type: 
  Country: None (occurrence: None)
  Receive Date: 20041025
  Receipt Date: 20030917
  Transmission Date: 20050328
  Serious: Yes (Other)
  Sender: FDA-Public Use
  Company Number: US-JNJFOC-20030904505

PATIENT
  Age: 6 Year
  Sex: Female
  Weight: 17.9 kg

DRUGS (7)
  1. REMICADE [Suspect]
     Indication: JUVENILE ARTHRITIS
     Dosage: 150 MG, INTRAVENOUS
     Route: 042
     Dates: start: 20020601
  2. REMICADE [Suspect]
     Indication: JUVENILE ARTHRITIS
     Dosage: 150 MG, INTRAVENOUS
     Route: 042
     Dates: start: 20030722
  3. PREVACID [Concomitant]
  4. NAPROXEN [Concomitant]
  5. PREDFORTE (PREDNISOLONE ACETATE) [Concomitant]
  6. PEDIAPRED (PREDNISOLONE SODIUM PHOSPHATE) [Concomitant]
  7. ZYRTEC [Concomitant]

REACTIONS (1)
  - MENINGITIS [None]
